FAERS Safety Report 5277332-0 (Version None)
Quarter: 2007Q1

REPORT INFORMATION
  Report Type: 
  Country: None (occurrence: None)
  Receive Date: 20061213
  Receipt Date: 20040719
  Transmission Date: 20070707
  Serious: No
  Sender: FDA-Public Use
  Company Number: 2004UW14965

PATIENT
  Age: 17 Year
  Sex: Male
  Weight: 54.4316 kg

DRUGS (6)
  1. SEROQUEL [Suspect]
     Indication: ABNORMAL BEHAVIOUR
     Dosage: 200 MG BID PO
     Route: 048
  2. SEROQUEL [Suspect]
     Indication: AGITATION
     Dosage: 200 MG BID PO
     Route: 048
  3. SEROQUEL [Suspect]
     Indication: STRESS
     Dosage: 200 MG BID PO
     Route: 048
  4. SEROQUEL [Suspect]
     Indication: ABNORMAL BEHAVIOUR
     Dosage: 200 MG QD PO
     Route: 048
  5. SEROQUEL [Suspect]
     Indication: AGITATION
     Dosage: 200 MG QD PO
     Route: 048
  6. SEROQUEL [Suspect]
     Indication: STRESS
     Dosage: 200 MG QD PO
     Route: 048

REACTIONS (5)
  - DROOLING [None]
  - DYSKINESIA [None]
  - PALPITATIONS [None]
  - TONGUE PARALYSIS [None]
  - TREMOR [None]
